FAERS Safety Report 4870830-0 (Version None)
Quarter: 2006Q1

REPORT INFORMATION
  Report Type: 
  Country: None (occurrence: None)
  Receive Date: 20060103
  Receipt Date: 20051004
  Transmission Date: 20060701
  Serious: Yes (Death)
  Sender: FDA-Public Use
  Company Number: US-MERCK-0510USA03057

PATIENT
  Age: 64 Year
  Sex: Male
  Weight: 94 kg

DRUGS (9)
  1. VIOXX [Suspect]
     Indication: OSTEOARTHRITIS
     Route: 048
     Dates: start: 20010416
  2. NITROGLYCERIN [Concomitant]
     Route: 065
  3. ISORDIL [Concomitant]
     Route: 065
  4. BUFFERIN [Concomitant]
     Route: 065
  5. VITAMIN E [Concomitant]
     Route: 065
  6. XANAX [Concomitant]
     Route: 065
  7. VITAMINS (UNSPECIFIED) [Concomitant]
     Route: 065
  8. LODINE [Concomitant]
     Route: 065
  9. ZOCOR [Concomitant]
     Route: 065

REACTIONS (3)
  - CARDIAC ARREST [None]
  - CORONARY ARTERY DISEASE [None]
  - MYOCARDIAL INFARCTION [None]
